FAERS Safety Report 5420546-7 (Version None)
Quarter: 2007Q3

REPORT INFORMATION
  Report Type: 
  Country: None (occurrence: None)
  Receive Date: 20070821
  Receipt Date: 20061017
  Transmission Date: 20080115
  Serious: No
  Sender: FDA-Public Use
  Company Number: US-KINGPHARMUSA00001-K200601312

PATIENT

DRUGS (3)
  1. CYTOMEL [Suspect]
     Indication: HYPOTHYROIDISM
     Dosage: UNK, QD
     Route: 048
     Dates: start: 19710101, end: 20061009
  2. CYTOMEL [Suspect]
     Dosage: UNK, QD
     Route: 048
     Dates: start: 20061011
  3. PROZAC [Concomitant]
     Indication: DEPRESSION
     Dosage: UNK, QD
     Route: 048

REACTIONS (4)
  - CHILLS [None]
  - DISORIENTATION [None]
  - FACE OEDEMA [None]
  - HYPERHIDROSIS [None]
